FAERS Safety Report 15520413 (Version 3)
Quarter: 2018Q4

REPORT INFORMATION
  Report Type: Spontaneous
  Country: DE (occurrence: DE)
  Receive Date: 20181017
  Receipt Date: 20181106
  Transmission Date: 20190205
  Serious: Yes (Congenital Anomaly)
  Sender: FDA-Public Use
  Company Number: DE-TAKEDA-2018TUS029928

PATIENT
  Sex: Male

DRUGS (3)
  1. ENTYVIO [Suspect]
     Active Substance: VEDOLIZUMAB
     Indication: COLITIS
     Dosage: 300 MG, Q4WEEKS
     Route: 064
     Dates: start: 20150101, end: 20180501
  2. METAMIZOLE [Concomitant]
     Active Substance: METAMIZOLE
     Indication: GASTROOESOPHAGEAL REFLUX DISEASE
     Dosage: UNK
     Route: 064
  3. OMEPRAZOLE. [Concomitant]
     Active Substance: OMEPRAZOLE
     Indication: GASTROOESOPHAGEAL REFLUX DISEASE
     Dosage: UNK
     Route: 064

REACTIONS (2)
  - Congenital megacolon [Unknown]
  - Atrial septal defect [Unknown]

NARRATIVE: CASE EVENT DATE: 2018
